FAERS Safety Report 10176218 (Version 3)
Quarter: 2014Q3

REPORT INFORMATION
  Report Type: Spontaneous
  Country: US (occurrence: None)
  Receive Date: 20140514
  Receipt Date: 20140801
  Transmission Date: 20150326
  Serious: Yes (Hospitalization, Other)
  Sender: FDA-Public Use
  Company Number: 2014US003257

PATIENT
  Age: 52 Year
  Sex: Male
  Weight: 115 kg

DRUGS (2)
  1. ICLUSIG [Suspect]
     Active Substance: PONATINIB
     Indication: LEUKAEMIA RECURRENT
     Route: 048
     Dates: start: 20140227
  2. ICLUSIG [Suspect]
     Active Substance: PONATINIB
     Indication: CHRONIC MYELOID LEUKAEMIA
     Route: 048
     Dates: start: 20140227

REACTIONS (10)
  - Intervertebral disc protrusion [None]
  - Sensory disturbance [None]
  - Peripheral swelling [None]
  - Incision site infection [None]
  - Mobility decreased [None]
  - Sensory loss [None]
  - Skin warm [None]
  - Pain in extremity [None]
  - Wound infection staphylococcal [None]
  - Erythema [None]

NARRATIVE: CASE EVENT DATE: 20140428
